FAERS Safety Report 15631933 (Version 3)
Quarter: 2019Q3

REPORT INFORMATION
  Report Type: Report from Study
  Country: JP (occurrence: JP)
  Receive Date: 20181119
  Receipt Date: 20190921
  Transmission Date: 20191004
  Serious: Yes (Other)
  Sender: FDA-Public Use
  Company Number: JP-AMGEN-JPNCT2018164538

PATIENT
  Age: 83 Year
  Sex: Male

DRUGS (22)
  1. LARIXIN [Concomitant]
     Indication: TINEA PEDIS
     Dosage: UNK
     Route: 048
     Dates: end: 20180718
  2. DARBEPOETIN ALFA [Suspect]
     Active Substance: DARBEPOETIN ALFA
     Indication: MYELODYSPLASTIC SYNDROME
     Dosage: 180 MICROGRAM, Q2WK
     Route: 058
     Dates: start: 20171130, end: 20180125
  3. RINDERON [Concomitant]
     Indication: TINEA PEDIS
     Dosage: UNK
     Route: 061
     Dates: end: 20180725
  4. LULICON [Concomitant]
     Active Substance: LULICONAZOLE
     Indication: TINEA PEDIS
     Dosage: UNK
     Route: 061
  5. LULICON [Concomitant]
     Active Substance: LULICONAZOLE
     Indication: DERMATOPHYTOSIS OF NAIL
  6. TELMISARTAN. [Concomitant]
     Active Substance: TELMISARTAN
     Dosage: UNK
     Route: 048
  7. GLAKAY [Concomitant]
     Active Substance: MENATETRENONE
     Indication: MYELODYSPLASTIC SYNDROME
     Dosage: 45 MILLIGRAM
     Route: 048
  8. TOVIAZ [Concomitant]
     Active Substance: FESOTERODINE FUMARATE
     Indication: HYPERTONIC BLADDER
     Dosage: 4 MILLIGRAM
     Route: 048
  9. GENTACIN [Concomitant]
     Active Substance: GENTAMICIN SULFATE
     Indication: DERMATOPHYTOSIS OF NAIL
  10. DARBEPOETIN ALFA [Suspect]
     Active Substance: DARBEPOETIN ALFA
     Dosage: 240 MICROGRAM, Q2WK
     Route: 058
     Dates: start: 20180208, end: 20180419
  11. ASTAT [Concomitant]
     Indication: TINEA PEDIS
     Dosage: UNK
     Route: 061
     Dates: end: 20180710
  12. DARBEPOETIN ALFA [Suspect]
     Active Substance: DARBEPOETIN ALFA
     Dosage: 60 MICROGRAM, Q2WK
     Route: 058
     Dates: start: 20171101, end: 20171101
  13. DARBEPOETIN ALFA [Suspect]
     Active Substance: DARBEPOETIN ALFA
     Dosage: 240 MICROGRAM, Q2WK
     Route: 058
     Dates: start: 20180502
  14. TOVIAZ [Concomitant]
     Active Substance: FESOTERODINE FUMARATE
     Indication: HYPERTONIC BLADDER
  15. CLENAFIN [Concomitant]
     Active Substance: EFINACONAZOLE
     Indication: DERMATOPHYTOSIS OF NAIL
     Dosage: UNK
     Route: 061
     Dates: end: 20180710
  16. GENTACIN [Concomitant]
     Active Substance: GENTAMICIN SULFATE
     Indication: DERMATOPHYTOSIS OF NAIL
  17. TELMISARTAN. [Concomitant]
     Active Substance: TELMISARTAN
     Indication: HYPERTENSION
     Dosage: UNK
     Route: 048
  18. DARBEPOETIN ALFA [Suspect]
     Active Substance: DARBEPOETIN ALFA
     Dosage: 120 MICROGRAM
     Route: 058
     Dates: start: 20171115, end: 20171115
  19. MYSER [Concomitant]
     Indication: DRUG ERUPTION
     Dosage: UNK
     Route: 061
  20. PROPETO [Concomitant]
     Active Substance: PETROLATUM
     Indication: DRUG ERUPTION
     Dosage: UNK
     Route: 061
  21. GENTACIN [Concomitant]
     Active Substance: GENTAMICIN SULFATE
     Indication: TINEA PEDIS
     Dosage: UNK
     Route: 061
     Dates: end: 20180716
  22. LULICON [Concomitant]
     Active Substance: LULICONAZOLE
     Indication: DERMATOPHYTOSIS OF NAIL
     Dosage: UNK
     Route: 061

REACTIONS (1)
  - Hypersensitivity vasculitis [Recovered/Resolved]

NARRATIVE: CASE EVENT DATE: 20180205
